FAERS Safety Report 9515758 (Version 1)
Quarter: 2013Q3

REPORT INFORMATION
  Report Type: Spontaneous
  Country: DE (occurrence: DE)
  Receive Date: 20130911
  Receipt Date: 20130911
  Transmission Date: 20140515
  Serious: Yes (Other)
  Sender: FDA-Public Use
  Company Number: DE-PFIZER INC-2013255503

PATIENT
  Age: 25 Year
  Sex: Female

DRUGS (1)
  1. HUMATIN [Suspect]
     Dosage: UNK

REACTIONS (1)
  - Helicobacter infection [Unknown]
